FAERS Safety Report 4863260-9 (Version None)
Quarter: 2005Q4

REPORT INFORMATION
  Report Type: 
  Country: None (occurrence: None)
  Receive Date: 20051219
  Receipt Date: 20051212
  Transmission Date: 20060501
  Serious: Yes (Other)
  Sender: FDA-Public Use
  Company Number: 2005165776

PATIENT
  Age: 16 Year
  Sex: Female
  Weight: 63.5036 kg

DRUGS (1)
  1. DRAMAMINE [Suspect]
     Indication: INTENTIONAL OVERDOSE
     Dosage: 18 TABLETS AT ONCE ORAL
     Route: 048
     Dates: start: 20051212, end: 20051212

REACTIONS (2)
  - HALLUCINATION [None]
  - INTENTIONAL OVERDOSE [None]
